FAERS Safety Report 6737622-9 (Version None)
Quarter: 2010Q2

REPORT INFORMATION
  Report Type: 
  Country: None (occurrence: None)
  Receive Date: 20100524
  Receipt Date: 20100517
  Transmission Date: 20101027
  Serious: Yes (Other)
  Sender: FDA-Public Use
  Company Number: US-TEVA-235196USA

PATIENT
  Age: 66 Year
  Sex: Male

DRUGS (5)
  1. PROCHLORPERAZINE MALEATE, TABLETS 10 MG [Suspect]
  2. DASATINIB [Suspect]
     Indication: MUCOEPIDERMOID CARCINOMA
     Dosage: STUDY DRUG
     Route: 048
     Dates: start: 20100218, end: 20100401
  3. OXYCODONE HYDROCHLORIDE [Suspect]
  4. TETRAHYDROCANNABINOL [Suspect]
  5. OXYCODONE HYDROCHLORIDE [Suspect]

REACTIONS (1)
  - DECREASED APPETITE [None]
